FAERS Safety Report 7914872-7 (Version None)
Quarter: 2011Q4

REPORT INFORMATION
  Report Type: 
  Country: None (occurrence: None)
  Receive Date: 20111115
  Receipt Date: 20111109
  Transmission Date: 20120403
  Serious: Yes (Hospitalization, Disabling, Other)
  Sender: FDA-Public Use
  Company Number: US-B.I. PHARMACEUTICALS,INC./RIDGEFIELD-2011-BP-24861BP

PATIENT
  Sex: Male

DRUGS (10)
  1. LASIX [Concomitant]
     Dosage: 20 MG
  2. VENTOLIN DS [Concomitant]
  3. SIMVASTATIN [Concomitant]
     Dosage: 40 MG
  4. ASPIRIN [Concomitant]
     Dosage: 162 MG
  5. PROZAC [Concomitant]
     Dosage: 20 MG
  6. FENOFIBRATE [Concomitant]
     Dosage: 134 MG
  7. SPIRIVA [Suspect]
     Indication: CHRONIC OBSTRUCTIVE PULMONARY DISEASE
     Dosage: 18 MCG
     Route: 055
     Dates: start: 20080101
  8. PLAVIX [Concomitant]
     Dosage: 75 MG
  9. CAPTOPRIL [Concomitant]
     Dosage: 12.5 MG
  10. TOPROL-XL [Concomitant]
     Dosage: 50 MG

REACTIONS (6)
  - AORTIC ANEURYSM [None]
  - CEREBROVASCULAR ACCIDENT [None]
  - STENT MALFUNCTION [None]
  - BLINDNESS [None]
  - AMNESIA [None]
  - THROMBOSIS [None]
